FAERS Safety Report 7138399-8 (Version None)
Quarter: 2010Q4

REPORT INFORMATION
  Report Type: 
  Country: None (occurrence: None)
  Receive Date: 20101202
  Receipt Date: 20101202
  Transmission Date: 20110411
  Serious: Yes (Life-Threatening, Hospitalization)
  Sender: FDA-Public Use
  Company Number: None

PATIENT
  Age: 55 Year
  Sex: Male
  Weight: 65 kg

DRUGS (1)
  1. BEVACIZUMAB [Suspect]
     Indication: FALLOPIAN TUBE CANCER
     Dosage: 10-15 MG/KG EVERY 14 DAYS IV
     Route: 042
     Dates: start: 20100104, end: 20100809

REACTIONS (3)
  - HYPONATRAEMIA [None]
  - NECROTISING FASCIITIS [None]
  - WOUND INFECTION [None]
